FAERS Safety Report 21491959 (Version 2)
Quarter: 2022Q4

REPORT INFORMATION
  Report Type: Report from Study
  Country: US (occurrence: US)
  Receive Date: 20221021
  Receipt Date: 20221214
  Transmission Date: 20230112
  Serious: Yes (Other)
  Sender: FDA-Public Use
  Company Number: US-ABBVIE-4169647

PATIENT
  Sex: Female

DRUGS (3)
  1. VENCLEXTA [Suspect]
     Active Substance: VENETOCLAX
     Indication: Non-Hodgkin^s lymphoma
     Dosage: TAKE 4 TABLET(S) BY MOUTH ON DAYS 22 AND ON.?STRENGTH:100MG
     Route: 048
  2. VENCLEXTA [Suspect]
     Active Substance: VENETOCLAX
     Indication: Non-Hodgkin^s lymphoma
     Dosage: TAKE 3 TABLET(S) BY MOUTH ON DAYS 16 THROUGH 21.?STRENGTH:100MG
     Route: 048
  3. VENCLEXTA [Suspect]
     Active Substance: VENETOCLAX
     Indication: Non-Hodgkin^s lymphoma
     Dosage: TAKE 2 TABLET(S) BY MOUTH EVERY DAY?STRENGTH:100MG
     Route: 048

REACTIONS (5)
  - Nephrolithiasis [Unknown]
  - White blood cell count decreased [Unknown]
  - Off label use [Unknown]
  - Unevaluable event [Recovered/Resolved]
  - Intentional product misuse [Unknown]

NARRATIVE: CASE EVENT DATE: 20210101
